FAERS Safety Report 4386159-3 (Version None)
Quarter: 2004Q2

REPORT INFORMATION
  Report Type: 
  Country: None (occurrence: None)
  Receive Date: 20040628
  Receipt Date: 20040628
  Transmission Date: 20050107
  Serious: Yes (Other)
  Sender: FDA-Public Use
  Company Number: None

PATIENT
  Age: 27 Year
  Sex: Male
  Weight: 72.5755 kg

DRUGS (1)
  1. ZOLOFT [Suspect]
     Dosage: 50 MG 1 A DAY ORAL
     Route: 048
     Dates: start: 20040101, end: 20040601

REACTIONS (4)
  - DRUG WITHDRAWAL SYNDROME [None]
  - FEELING ABNORMAL [None]
  - PANIC ATTACK [None]
  - PYREXIA [None]
